FAERS Safety Report 15427450 (Version 1)
Quarter: 2018Q3

REPORT INFORMATION
  Report Type: Report from Study
  Country: US (occurrence: US)
  Receive Date: 20180925
  Receipt Date: 20180925
  Transmission Date: 20181010
  Serious: Yes (Other)
  Sender: FDA-Public Use
  Company Number: US-SHIRE-US201836486

PATIENT
  Sex: Female

DRUGS (1)
  1. HUMAN NORMAL IMMUNOGLOBULIN; LIQUID [Suspect]
     Active Substance: HUMAN IMMUNOGLOBULIN G
     Indication: PRIMARY IMMUNODEFICIENCY SYNDROME
     Route: 042

REACTIONS (7)
  - Peritonitis [Unknown]
  - Regressive behaviour [Unknown]
  - Language disorder [Unknown]
  - Clostridium difficile infection [Unknown]
  - Inflammation [Unknown]
  - Inappropriate schedule of drug administration [Unknown]
  - Motor dysfunction [Unknown]
